FAERS Safety Report 11841872 (Version 1)
Quarter: 2015Q4

REPORT INFORMATION
  Report Type: Spontaneous
  Country: US (occurrence: US)
  Receive Date: 20151216
  Receipt Date: 20151216
  Transmission Date: 20160305
  Serious: No
  Sender: FDA-Public Use
  Company Number: US-RB-071829-15

PATIENT
  Age: 68 Year
  Sex: Female

DRUGS (1)
  1. DELSYM [Suspect]
     Active Substance: DEXTROMETHORPHAN
     Indication: COUGH
     Dosage: 5ML. BEGAN TAKING THE DRUG ON 15-DEC-2014, 3 HOURS BEFORE REPORTING.,FREQUENCY UNK
     Route: 048
     Dates: start: 20141215

REACTIONS (2)
  - Palpitations [Not Recovered/Not Resolved]
  - Drug ineffective [Not Recovered/Not Resolved]

NARRATIVE: CASE EVENT DATE: 20141215
